FAERS Safety Report 7411884-7 (Version None)
Quarter: 2011Q2

REPORT INFORMATION
  Report Type: 
  Country: None (occurrence: None)
  Receive Date: 20110413
  Receipt Date: 20110404
  Transmission Date: 20111010
  Serious: Yes (Life-Threatening, Hospitalization)
  Sender: FDA-Public Use
  Company Number: SI-SANOFI-AVENTIS-2011SA006676

PATIENT
  Sex: Male

DRUGS (7)
  1. WARFARIN [Suspect]
     Indication: ANTICOAGULANT THERAPY
     Route: 048
     Dates: start: 20101222, end: 20110130
  2. IRENAT [Concomitant]
     Indication: HYPERTHYROIDISM
     Dosage: 10 GTT/ 8H
     Route: 048
     Dates: start: 20101222
  3. PERINDOPRIL ERBUMINE [Suspect]
     Dosage: 4 MG/ 12H
     Route: 048
     Dates: start: 20101222, end: 20110130
  4. METHIMAZOLE [Concomitant]
     Indication: HYPERTHYROIDISM
     Dosage: 10 MG/ 12H
     Route: 048
     Dates: start: 20101222
  5. MULTAQ [Suspect]
     Indication: ATRIAL FIBRILLATION
     Route: 048
     Dates: start: 20101222, end: 20110130
  6. WARFARIN [Suspect]
     Indication: ATRIAL FIBRILLATION
     Route: 048
     Dates: start: 20101222, end: 20110130
  7. PROPRANOLOL [Concomitant]
     Indication: HYPERTHYROIDISM
     Dosage: 20 MG/ 8H
     Route: 048
     Dates: start: 20101222

REACTIONS (6)
  - CHOLESTATIC LIVER INJURY [None]
  - ABDOMINAL PAIN UPPER [None]
  - ASTHENIA [None]
  - NAUSEA [None]
  - MALAISE [None]
  - DECREASED APPETITE [None]
